FAERS Safety Report 15802289 (Version 1)
Quarter: 2019Q1

REPORT INFORMATION
  Report Type: Spontaneous
  Country: US (occurrence: US)
  Receive Date: 20190108
  Receipt Date: 20190108
  Transmission Date: 20190417
  Serious: Yes (Other)
  Sender: FDA-Public Use
  Company Number: None

PATIENT
  Age: 67 Year
  Sex: Female
  Weight: 85.5 kg

DRUGS (4)
  1. OMEGA-3 FATTY ACIDS [Concomitant]
     Active Substance: OMEGA-3 FATTY ACIDS
  2. LOSARTAN SODIUM 100 MG. [Suspect]
     Active Substance: LOSARTAN
     Indication: HYPERTENSION
     Dosage: ?          QUANTITY:1 TABLET(S);?
     Route: 048
     Dates: start: 20161001, end: 20180107
  3. ZYRTEC [Concomitant]
     Active Substance: CETIRIZINE HYDROCHLORIDE
  4. MULTIVITAMINS [Concomitant]
     Active Substance: VITAMINS

REACTIONS (4)
  - Recalled product administered [None]
  - Product contamination chemical [None]
  - Rash [None]
  - Product quality issue [None]

NARRATIVE: CASE EVENT DATE: 20161001
